FAERS Safety Report 5962875 (Version 5)
Quarter: 2020Q3

REPORT INFORMATION
  Report Type: Report from Study
  Country: US (occurrence: US)
  Receive Date: 20060118
  Receipt Date: 20061009
  Transmission Date: 20201105
  Serious: Yes (Hospitalization)
  Sender: FDA-Public Use
  Company Number: US-ROCHE-429954

PATIENT
  Age: 75 Year
  Sex: Female
  Weight: 91 kg

DRUGS (12)
  1. FOSINOPRIL SODIUM. [Concomitant]
     Active Substance: FOSINOPRIL SODIUM
     Dates: start: 19990315
  2. OXYBUTYNIN. [Concomitant]
     Active Substance: OXYBUTYNIN CHLORIDE
     Dates: start: 20030815
  3. GABAPENTIN. [Concomitant]
     Active Substance: GABAPENTIN
     Dates: start: 20050131
  4. FUROSEMIDE. [Concomitant]
     Active Substance: FUROSEMIDE
     Dates: start: 19990315
  5. ERGOCALCIFEROL. [Concomitant]
     Active Substance: ERGOCALCIFEROL
     Dates: start: 20031115
  6. DILTIAZEM HYDROCHLORIDE. [Concomitant]
     Active Substance: DILTIAZEM HYDROCHLORIDE
     Dates: start: 19990315
  7. IBANDRONIC ACID. [Suspect]
     Active Substance: IBANDRONIC ACID
     Indication: OSTEOPOROSIS
     Route: 048
     Dates: start: 20050507
  8. POTASSIUM [Concomitant]
     Active Substance: POTASSIUM
     Dates: start: 20030815
  9. OXYCODONE [Concomitant]
     Active Substance: OXYCODONE
     Dates: start: 20031015
  10. COUMADIN [Concomitant]
     Active Substance: WARFARIN SODIUM
     Dates: start: 19850615
  11. ALBUTEROL. [Concomitant]
     Active Substance: ALBUTEROL
     Route: 055
     Dates: start: 19990315
  12. PANTOPRAZOLE SODIUM. [Concomitant]
     Active Substance: PANTOPRAZOLE SODIUM
     Dates: start: 20030815

REACTIONS (15)
  - Hypertension [Recovered/Resolved]
  - Atrioventricular block complete [None]
  - Myocardial infarction [None]
  - Condition aggravated [None]
  - Metabolic disorder [None]
  - Cardiac failure congestive [Recovered/Resolved]
  - Dyspnoea [Recovered/Resolved]
  - Bundle branch block right [None]
  - Chest pain [Recovered/Resolved]
  - Cardiac murmur [None]
  - Chronic obstructive pulmonary disease [Recovered/Resolved]
  - Abdominal distension [None]
  - Constipation [Recovered/Resolved]
  - Atrioventricular block second degree [None]
  - Haemoglobin decreased [None]

NARRATIVE: CASE EVENT DATE: 20051113
